FAERS Safety Report 4820405-4 (Version None)
Quarter: 2005Q4

REPORT INFORMATION
  Report Type: 
  Country: None (occurrence: None)
  Receive Date: 20051014
  Receipt Date: 20050830
  Transmission Date: 20060501
  Serious: No
  Sender: FDA-Public Use
  Company Number: 2005SP002595

PATIENT
  Age: 63 Year
  Sex: Male

DRUGS (6)
  1. LUNESTA [Suspect]
     Dosage: 3 MG;HS;ORAL
     Route: 048
     Dates: start: 20050730
  2. CALCIUM GLUCONATE [Concomitant]
  3. FISH OIL [Concomitant]
  4. VITAMIN E [Concomitant]
  5. VASOTEC [Concomitant]
  6. PREVACID [Concomitant]

REACTIONS (2)
  - DYSGEUSIA [None]
  - PARAESTHESIA [None]
